FAERS Safety Report 10037779 (Version 1)
Quarter: 2014Q1

REPORT INFORMATION
  Report Type: Spontaneous
  Country: US (occurrence: US)
  Receive Date: 20140326
  Receipt Date: 20140326
  Transmission Date: 20141002
  Serious: No
  Sender: FDA-Public Use
  Company Number: US-PFIZER INC-2014083588

PATIENT
  Sex: Female

DRUGS (1)
  1. ADVIL [Suspect]
     Indication: BACK PAIN
     Dosage: UNK, 3 TO 4 TIMES A DAY

REACTIONS (3)
  - Stomatitis [Unknown]
  - Glossodynia [Unknown]
  - Abdominal pain upper [Unknown]
